FAERS Safety Report 7435308-9 (Version None)
Quarter: 2011Q2

REPORT INFORMATION
  Report Type: 
  Country: None (occurrence: None)
  Receive Date: 20110425
  Receipt Date: 20110414
  Transmission Date: 20111010
  Serious: Yes (Disabling)
  Sender: FDA-Public Use
  Company Number: BR-ASTRAZENECA-2011SE22002

PATIENT
  Age: 67 Year
  Sex: Female

DRUGS (6)
  1. OMEPRAZOLE [Suspect]
     Indication: HIATUS HERNIA
     Route: 048
     Dates: start: 20030101
  2. SYMBICORT [Suspect]
     Indication: BRONCHITIS
     Dosage: 160/4.5 MCG TWO TIMES A DAY
     Route: 055
     Dates: start: 20050101, end: 20060101
  3. RIVOTRIL [Concomitant]
  4. SYMBICORT [Suspect]
     Dosage: 160/4.5 MCG AS REQUIRED
     Route: 055
     Dates: start: 20060101
  5. SYNTHROID [Concomitant]
     Dates: start: 20070101
  6. UNKNOWN CORTICOID [Concomitant]
     Dates: end: 20050101

REACTIONS (4)
  - VERTEBROBASILAR INSUFFICIENCY [None]
  - HYPERTHYROIDISM [None]
  - APNOEIC ATTACK [None]
  - DIZZINESS [None]
